FAERS Safety Report 6981113-7 (Version None)
Quarter: 2010Q3

REPORT INFORMATION
  Report Type: 
  Country: None (occurrence: None)
  Receive Date: 20100914
  Receipt Date: 20100909
  Transmission Date: 20110219
  Serious: Yes (Life-Threatening, Other)
  Sender: FDA-Public Use
  Company Number: GB-MERCK-0711GBR00081

PATIENT
  Age: 19 Year
  Sex: Female

DRUGS (14)
  1. CANCIDAS [Suspect]
     Route: 042
  2. ACYCLOVIR [Suspect]
     Route: 065
  3. ALLOPURINOL [Suspect]
     Route: 048
  4. CHLORPHENIRAMINE MALEATE [Suspect]
     Route: 042
  5. CYCLOSPORINE [Suspect]
     Route: 065
  6. ETOPOSIDE [Suspect]
     Route: 042
     Dates: start: 20070915, end: 20070915
  7. KETAMINE HYDROCHLORIDE [Suspect]
     Indication: PAIN
     Route: 042
     Dates: start: 20070921, end: 20070928
  8. MORPHINE [Suspect]
     Route: 042
  9. NORETHINDRONE [Suspect]
     Route: 048
  10. OMEPRAZOLE [Suspect]
     Route: 065
  11. ONDANSETRON [Suspect]
     Route: 042
  12. ACETAMINOPHEN [Suspect]
     Route: 042
  13. PIPERACILLIN SODIUM AND TAZOBACTAM SODIUM [Suspect]
     Route: 042
  14. VORICONAZOLE [Suspect]
     Route: 048

REACTIONS (4)
  - DILATATION INTRAHEPATIC DUCT ACQUIRED [None]
  - HEPATOTOXICITY [None]
  - LIVER FUNCTION TEST ABNORMAL [None]
  - VENOOCCLUSIVE DISEASE [None]
